FAERS Safety Report 16029742 (Version 1)
Quarter: 2019Q1

REPORT INFORMATION
  Report Type: Spontaneous
  Country: FR (occurrence: FR)
  Receive Date: 20190304
  Receipt Date: 20190304
  Transmission Date: 20190418
  Serious: Yes (Other)
  Sender: FDA-Public Use
  Company Number: FR-MYLANLABS-2019M1018852

PATIENT
  Age: 63 Year
  Sex: Female
  Weight: 58 kg

DRUGS (5)
  1. EXFORGE COMBINATION [Concomitant]
     Active Substance: AMLODIPINE BESYLATE\VALSARTAN
     Dosage: 10/160
  2. FENOFIBRATE. [Concomitant]
     Active Substance: FENOFIBRATE
  3. OGASTORO [Concomitant]
     Active Substance: LANSOPRAZOLE
  4. TEMERIT [Concomitant]
     Active Substance: NEBIVOLOL
  5. ARIXTRA [Suspect]
     Active Substance: FONDAPARINUX SODIUM
     Indication: THROMBOPHLEBITIS SUPERFICIAL
     Dosage: 1 DOSAGE FORM, QD
     Route: 058
     Dates: start: 20181206, end: 20181208

REACTIONS (2)
  - Oedema [Recovered/Resolved]
  - Incorrect dose administered [Unknown]

NARRATIVE: CASE EVENT DATE: 20181206
